FAERS Safety Report 9901901 (Version 3)
Quarter: 2015Q3

REPORT INFORMATION
  Report Type: Report from Study
  Country: JP (occurrence: JP)
  Receive Date: 20140217
  Receipt Date: 20150925
  Transmission Date: 20151125
  Serious: Yes (Hospitalization, Other)
  Sender: FDA-Public Use
  Company Number: JP-VIIV HEALTHCARE LIMITED-B0969127A

PATIENT
  Age: 6 Decade
  Sex: Male

DRUGS (16)
  1. ZIAGEN [Suspect]
     Active Substance: ABACAVIR SULFATE
     Indication: HIV INFECTION
     Dosage: 600 MG, 1D
     Route: 048
     Dates: start: 20010406, end: 20030408
  2. OLMETEC [Concomitant]
     Active Substance: OLMESARTAN MEDOXOMIL
     Indication: HYPERTENSION
     Dosage: 40 MG, 1D
     Route: 048
     Dates: start: 20140401, end: 20140804
  3. ALLEGRA [Concomitant]
     Active Substance: FEXOFENADINE HYDROCHLORIDE
     Indication: PROPHYLAXIS
     Dosage: 60 MG, BID
     Dates: start: 20140401
  4. MARAVIROC [Suspect]
     Active Substance: MARAVIROC
     Dosage: 1200 MG, 1D
     Dates: start: 20120903
  5. EPIVIR [Suspect]
     Active Substance: LAMIVUDINE
     Indication: HIV INFECTION
     Dosage: 150 MG, BID
     Route: 048
     Dates: start: 20010208, end: 20030408
  6. VIRACEPT [Concomitant]
     Active Substance: NELFINAVIR MESYLATE
     Indication: HIV INFECTION
     Route: 048
     Dates: end: 20110424
  7. BAYASPIRIN [Concomitant]
     Active Substance: ASPIRIN
     Indication: RETINAL VEIN THROMBOSIS
     Dosage: 100 MG, QD
     Dates: start: 20140401
  8. AMLODIN [Concomitant]
     Active Substance: AMLODIPINE BESYLATE
     Indication: HYPERTENSION
     Dosage: 5 MG, QD
     Route: 048
     Dates: start: 20140401, end: 20140804
  9. INTELENCE [Suspect]
     Active Substance: ETRAVIRINE
     Indication: HIV INFECTION
     Dosage: 400 MG, 1D
     Route: 048
     Dates: start: 20120903
  10. MAGLAX [Concomitant]
     Active Substance: MAGNESIUM OXIDE
     Indication: PROPHYLAXIS
     Dosage: 500 MG, TID
     Dates: start: 20140401
  11. ISENTRESS [Suspect]
     Active Substance: RALTEGRAVIR POTASSIUM
     Indication: HIV INFECTION
     Dosage: 800 MG, 1D
     Route: 048
     Dates: start: 20110425
  12. MARAVIROC [Suspect]
     Active Substance: MARAVIROC
     Indication: HIV INFECTION
     Dosage: 600 MG, 1D
     Dates: start: 20110425, end: 20120902
  13. VIRAMUNE [Concomitant]
     Active Substance: NEVIRAPINE
     Indication: HIV INFECTION
     Dosage: 400 MG, 1D
     Route: 048
     Dates: end: 20110424
  14. BERIZYM [Concomitant]
     Active Substance: CELLULASE\DIASTASE\LIPASE
     Indication: PROPHYLAXIS
     Dosage: 1 G, TID
     Route: 048
     Dates: start: 20140401
  15. PRONON [Concomitant]
     Active Substance: PROPAFENONE
     Indication: ARRHYTHMIA
     Dosage: 100 MG, TID
     Route: 048
     Dates: start: 20140401
  16. UNKNOWN DRUG [Concomitant]
     Active Substance: UNSPECIFIED INGREDIENT

REACTIONS (4)
  - Prerenal failure [Recovered/Resolved]
  - Dehydration [Recovered/Resolved]
  - Headache [Recovering/Resolving]
  - Renal impairment [Recovered/Resolved]

NARRATIVE: CASE EVENT DATE: 200108
